FAERS Safety Report 7717956-1 (Version None)
Quarter: 2011Q3

REPORT INFORMATION
  Report Type: 
  Country: None (occurrence: None)
  Receive Date: 20110830
  Receipt Date: 20110504
  Transmission Date: 20111222
  Serious: Yes (Other)
  Sender: FDA-Public Use
  Company Number: US-AMGEN-USASP2011022852

PATIENT
  Age: 74 Year
  Sex: Female
  Weight: 83.9 kg

DRUGS (3)
  1. NPLATE [Suspect]
     Indication: IDIOPATHIC THROMBOCYTOPENIC PURPURA
     Dosage: 168 A?G, ONE TIME DOSE
     Route: 058
     Dates: start: 20110118, end: 20110120
  2. RITUXIMAB [Concomitant]
  3. IMMUNOGLOBULINS [Concomitant]

REACTIONS (1)
  - DRUG INEFFECTIVE [None]
